FAERS Safety Report 9686701 (Version 1)
Quarter: 2013Q4

REPORT INFORMATION
  Report Type: Report from Study
  Country: FR (occurrence: FR)
  Receive Date: 20131113
  Receipt Date: 20131113
  Transmission Date: 20140711
  Serious: Yes (Death, Hospitalization)
  Sender: FDA-Public Use
  Company Number: FR-PFIZER INC-2013320014

PATIENT
  Age: 66 Year
  Sex: Female

DRUGS (2)
  1. SUTENT [Suspect]
     Indication: METASTATIC RENAL CELL CARCINOMA
     Dosage: 50 MG, UNK
     Route: 048
     Dates: start: 20120206
  2. SUTENT [Suspect]
     Dosage: 37.5 MG, UNK
     Route: 048
     Dates: end: 20121214

REACTIONS (2)
  - General physical health deterioration [Fatal]
  - Respiratory distress [Fatal]
